FAERS Safety Report 7907548-3 (Version None)
Quarter: 2011Q4

REPORT INFORMATION
  Report Type: 
  Country: None (occurrence: None)
  Receive Date: 20111110
  Receipt Date: 20111031
  Transmission Date: 20120403
  Serious: Yes (Hospitalization, Other)
  Sender: FDA-Public Use
  Company Number: PHHY2011JP93345

PATIENT
  Age: 81 Year
  Sex: Male

DRUGS (1)
  1. ZOMETA [Suspect]
     Indication: METASTASES TO BONE
     Dosage: 4 MG

REACTIONS (8)
  - DENTAL FISTULA [None]
  - EXPOSED BONE IN JAW [None]
  - TOOTHACHE [None]
  - TOOTH RESORPTION [None]
  - PERIODONTITIS [None]
  - GINGIVAL PAIN [None]
  - OSTEONECROSIS OF JAW [None]
  - SWELLING [None]
